FAERS Safety Report 6247403-0 (Version None)
Quarter: 2009Q2

REPORT INFORMATION
  Report Type: 
  Country: None (occurrence: None)
  Receive Date: 20090626
  Receipt Date: 20090616
  Transmission Date: 20091009
  Serious: Yes (Hospitalization, Other)
  Sender: FDA-Public Use
  Company Number: FR-PFIZER INC-2009227455

PATIENT
  Age: 37 Year

DRUGS (3)
  1. RELPAX [Suspect]
     Indication: HEADACHE
     Dosage: UNK
     Route: 048
     Dates: start: 20090424, end: 20090424
  2. DERINOX [Concomitant]
     Indication: RHINITIS
     Dosage: UNK
     Route: 045
     Dates: start: 20090423, end: 20090424
  3. ADVIL [Concomitant]
     Dosage: UNK
     Dates: start: 20090423

REACTIONS (3)
  - ALTERED STATE OF CONSCIOUSNESS [None]
  - HYPOTONIA [None]
  - MALAISE [None]
